FAERS Safety Report 9381910 (Version 2)
Quarter: 2013Q3

REPORT INFORMATION
  Report Type: Spontaneous
  Country: US (occurrence: US)
  Receive Date: 20130703
  Receipt Date: 20130729
  Transmission Date: 20140515
  Serious: Yes (Other)
  Sender: FDA-Public Use
  Company Number: US-PFIZER INC-2013192381

PATIENT
  Age: 63 Year
  Sex: Male

DRUGS (6)
  1. ZYVOX [Suspect]
     Indication: SEPSIS
     Dosage: 600 MG, 2X/DAY
     Route: 048
     Dates: start: 20130624, end: 20130711
  2. ZYVOX [Suspect]
     Indication: EMPHYSEMA
  3. DIFLUCAN [Concomitant]
     Dosage: UNK
  4. AMPICILLIN [Concomitant]
     Dosage: UNK
  5. LEVOFLOXACIN [Concomitant]
  6. CLINDAMYCIN [Concomitant]

REACTIONS (3)
  - Pancytopenia [Recovering/Resolving]
  - Erythema [Recovering/Resolving]
  - Pruritus [Unknown]
